FAERS Safety Report 21327940 (Version 1)
Quarter: 2022Q3

REPORT INFORMATION
  Report Type: Report from Study
  Country: US (occurrence: US)
  Receive Date: 20220913
  Receipt Date: 20220913
  Transmission Date: 20221027
  Serious: Yes (Other)
  Sender: FDA-Public Use
  Company Number: US-KYOWAKIRIN-2022BKK014275

PATIENT

DRUGS (1)
  1. NOURIANZ [Suspect]
     Active Substance: ISTRADEFYLLINE
     Indication: Parkinson^s disease
     Dosage: 20 MG, QD (EVERY NIGHT AT BEDTIME)
     Route: 048
     Dates: start: 20220214

REACTIONS (4)
  - Hallucination [Unknown]
  - Dizziness [Unknown]
  - Insomnia [Unknown]
  - Constipation [Unknown]
